FAERS Safety Report 14700053 (Version 2)
Quarter: 2018Q2

REPORT INFORMATION
  Report Type: Spontaneous
  Country: BR (occurrence: BR)
  Receive Date: 20180330
  Receipt Date: 20180402
  Transmission Date: 20180711
  Serious: Yes (Hospitalization, Other)
  Sender: FDA-Public Use
  Company Number: BR-PFIZER INC-2018127664

PATIENT
  Sex: Male

DRUGS (1)
  1. PRECEDEX [Suspect]
     Active Substance: DEXMEDETOMIDINE HYDROCHLORIDE

REACTIONS (17)
  - Swelling [Not Recovered/Not Resolved]
  - Sedation [Unknown]
  - Nervousness [Not Recovered/Not Resolved]
  - Infection [Unknown]
  - Seizure [Unknown]
  - Dizziness [Unknown]
  - Heart rate decreased [Unknown]
  - Lung infection [Unknown]
  - Subcutaneous emphysema [Not Recovered/Not Resolved]
  - Urinary tract infection [Not Recovered/Not Resolved]
  - Dyspnoea [Unknown]
  - Agitation [Unknown]
  - Abdominal pain [Unknown]
  - Erythema [Unknown]
  - Hypersomnia [Unknown]
  - Pain in extremity [Unknown]
  - Dermatitis [Unknown]
